FAERS Safety Report 5984015-8 (Version None)
Quarter: 2008Q4

REPORT INFORMATION
  Report Type: 
  Country: None (occurrence: None)
  Receive Date: 20081208
  Receipt Date: 20081128
  Transmission Date: 20090506
  Serious: Yes (Hospitalization)
  Sender: FDA-Public Use
  Company Number: FR-ELI_LILLY_AND_COMPANY-FR200812000014

PATIENT
  Age: 77 Year
  Sex: Female

DRUGS (8)
  1. FORTEO [Suspect]
     Indication: OSTEOPOROSIS
     Dosage: 20 UG, DAILY (1/D)
     Route: 058
     Dates: start: 20081031
  2. LASIX [Concomitant]
     Dosage: UNK, UNKNOWN
     Route: 065
  3. PREVISCAN [Concomitant]
     Dosage: UNK, UNKNOWN
     Route: 065
  4. SYMBICORT [Concomitant]
     Dosage: UNK, UNKNOWN
     Route: 065
  5. BRONCHODUAL [Concomitant]
     Dosage: UNK, UNKNOWN
     Route: 065
  6. TRANSIPEG [Concomitant]
     Dosage: UNK, UNKNOWN
     Route: 065
  7. MAG 2 [Concomitant]
     Dosage: UNK, UNKNOWN
     Route: 065
  8. CALCIUM [Concomitant]
     Dosage: UNK, UNKNOWN
     Route: 065

REACTIONS (3)
  - DYSPNOEA [None]
  - OEDEMA PERIPHERAL [None]
  - POLLAKIURIA [None]
